FAERS Safety Report 4636671-4 (Version None)
Quarter: 2005Q2

REPORT INFORMATION
  Report Type: 
  Country: None (occurrence: None)
  Receive Date: 20050414
  Receipt Date: 20050331
  Transmission Date: 20051028
  Serious: Yes (Death, Hospitalization)
  Sender: FDA-Public Use
  Company Number: 2003IM000804

PATIENT
  Age: 54 Year
  Sex: Female
  Weight: 69 kg

DRUGS (3)
  1. INTERFERON GAMMA-1B [Suspect]
     Indication: OVARIAN CANCER
     Dosage: 100 UG, TIW, SUBCUTANEOUS
     Route: 058
     Dates: start: 20030616, end: 20030728
  2. CARBOPLATIN [Suspect]
     Indication: OVARIAN CANCER
     Dosage: 696 MG, Q3W, INTRAVENOUS
     Route: 042
     Dates: start: 20030616, end: 20030717
  3. PACLITAXEL [Suspect]
     Indication: OVARIAN CANCER
     Dosage: 305 MG, Q3W, INTRAVENOUS
     Route: 042
     Dates: start: 20030616, end: 20030717

REACTIONS (2)
  - DEHYDRATION [None]
  - VOMITING [None]
